FAERS Safety Report 4647986-8 (Version None)
Quarter: 2005Q2

REPORT INFORMATION
  Report Type: 
  Country: None (occurrence: None)
  Receive Date: 20050331
  Receipt Date: 20050119
  Transmission Date: 20051028
  Serious: No
  Sender: FDA-Public Use
  Company Number: 05P-163-0287329

PATIENT
  Age: 82 Year
  Sex: Female
  Weight: 79.3795 kg

DRUGS (17)
  1. HUMIRA [Suspect]
     Indication: RHEUMATOID ARTHRITIS
     Dosage: 40 MG, 1 IN 2 WK, SUBCUTANEOUS
     Route: 058
     Dates: start: 20041201
  2. ALENDRONATE SODIUM [Concomitant]
  3. FUROSEMIDE [Concomitant]
  4. METOLAZONE [Concomitant]
  5. THYROID TAB [Concomitant]
  6. RAMIPRIL [Concomitant]
  7. POTASSIUM CHLORIDE [Concomitant]
  8. ALLOPURINOL [Concomitant]
  9. CARVEDILOL [Concomitant]
  10. PANTOPRAZOLE [Concomitant]
  11. ISOSORBIDE [Concomitant]
  12. ULTRACET [Concomitant]
  13. PRAVASTATIN SODIUM [Concomitant]
  14. ZOLPIDEM TARTRATE [Concomitant]
  15. CALCIUM GLUCONATE [Concomitant]
  16. MULTI-VITAMINS [Concomitant]
  17. GLUCOSAMINE [Concomitant]

REACTIONS (1)
  - INCREASED UPPER AIRWAY SECRETION [None]
